FAERS Safety Report 15815522 (Version 1)
Quarter: 2019Q1

REPORT INFORMATION
  Report Type: Spontaneous
  Country: DK (occurrence: DK)
  Receive Date: 20190112
  Receipt Date: 20190112
  Transmission Date: 20190417
  Serious: Yes (Congenital Anomaly)
  Sender: FDA-Public Use
  Company Number: PHHY2019DK003758

PATIENT
  Age: 1 Year
  Sex: Male

DRUGS (4)
  1. AZITHROMYCIN SANDOZ [Suspect]
     Active Substance: AZITHROMYCIN ANHYDROUS
     Indication: FOETAL EXPOSURE DURING PREGNANCY
     Dosage: MATERNAL DOSE: 500 MG, QD
     Route: 064
  2. AMPICILLN [Suspect]
     Active Substance: AMPICILLIN SODIUM
     Indication: FOETAL EXPOSURE DURING PREGNANCY
     Dosage: MATERNAL DOSE: 3000 MG, QD
     Route: 064
  3. SELOKEN [Concomitant]
     Active Substance: METOPROLOL
     Indication: FOETAL EXPOSURE DURING PREGNANCY
     Dosage: UNK
     Route: 064
  4. PENTREXYL [Suspect]
     Active Substance: AMPICILLIN
     Indication: FOETAL EXPOSURE DURING PREGNANCY
     Dosage: MATERNAL DOSE: 4 G, QD
     Route: 064

REACTIONS (3)
  - Supraventricular extrasystoles [Not Recovered/Not Resolved]
  - Neonatal tachycardia [Not Recovered/Not Resolved]
  - Foetal exposure during pregnancy [Unknown]
